FAERS Safety Report 17495527 (Version 3)
Quarter: 2020Q2

REPORT INFORMATION
  Report Type: Spontaneous
  Country: US (occurrence: US)
  Receive Date: 20200304
  Receipt Date: 20200624
  Transmission Date: 20200713
  Serious: Yes (Other)
  Sender: FDA-Public Use
  Company Number: US-PFIZER INC-2020096109

PATIENT
  Age: 57 Year
  Sex: Female

DRUGS (1)
  1. XELJANZ XR [Suspect]
     Active Substance: TOFACITINIB CITRATE
     Indication: RHEUMATOID ARTHRITIS
     Dosage: 11 MG, DAILY
     Route: 048
     Dates: start: 201909

REACTIONS (9)
  - Hypoaesthesia [Unknown]
  - Blood cholesterol increased [Unknown]
  - Dizziness postural [Unknown]
  - Fatigue [Unknown]
  - Groin pain [Unknown]
  - Somnolence [Unknown]
  - Chest discomfort [Unknown]
  - Blood pressure increased [Unknown]
  - Dyspnoea exertional [Unknown]

NARRATIVE: CASE EVENT DATE: 202002
